FAERS Safety Report 7627837-X (Version None)
Quarter: 2011Q3

REPORT INFORMATION
  Report Type: 
  Country: None (occurrence: None)
  Receive Date: 20110721
  Receipt Date: 20110713
  Transmission Date: 20111222
  Serious: Yes (Death, Life-Threatening, Other)
  Sender: FDA-Public Use
  Company Number: JP-BAYER-2011-054534

PATIENT
  Age: 70 Year
  Sex: Male

DRUGS (1)
  1. MAGNEVIST [Suspect]
     Indication: NUCLEAR MAGNETIC RESONANCE IMAGING
     Dosage: 15 ML, ONCE
     Route: 042
     Dates: start: 20110624, end: 20110624

REACTIONS (5)
  - LOSS OF CONSCIOUSNESS [None]
  - INTESTINAL HAEMORRHAGE [None]
  - CARDIO-RESPIRATORY ARREST [None]
  - NAUSEA [None]
  - GASTROINTESTINAL NECROSIS [None]
